FAERS Safety Report 4950522-X (Version None)
Quarter: 2006Q1

REPORT INFORMATION
  Report Type: 
  Country: None (occurrence: None)
  Receive Date: 20060322
  Receipt Date: 20060315
  Transmission Date: 20060701
  Serious: Yes (Disabling)
  Sender: FDA-Public Use
  Company Number: SA-GLAXOSMITHKLINE-B0416539A

PATIENT
  Age: 58 Year
  Sex: Male

DRUGS (1)
  1. AVODART [Suspect]
     Indication: BENIGN PROSTATIC HYPERPLASIA
     Dosage: .5MG PER DAY
     Route: 048
     Dates: start: 20050330, end: 20050428

REACTIONS (2)
  - BREAST PAIN [None]
  - BREAST TENDERNESS [None]
